FAERS Safety Report 7604933-4 (Version None)
Quarter: 2011Q3

REPORT INFORMATION
  Report Type: 
  Country: None (occurrence: None)
  Receive Date: 20110713
  Receipt Date: 20110706
  Transmission Date: 20111222
  Serious: Yes (Hospitalization)
  Sender: FDA-Public Use
  Company Number: US-BIOGENIDEC-2010BI038491

PATIENT
  Age: 32 Year
  Sex: Female

DRUGS (1)
  1. TYSABRI [Suspect]
     Indication: MULTIPLE SCLEROSIS
     Route: 042
     Dates: start: 20070625, end: 20100811

REACTIONS (7)
  - BLOOD POTASSIUM DECREASED [None]
  - DEHYDRATION [None]
  - FATIGUE [None]
  - HYPOTENSION [None]
  - NAUSEA [None]
  - HEAT EXHAUSTION [None]
  - ABDOMINAL PAIN UPPER [None]
